FAERS Safety Report 14402709 (Version 2)
Quarter: 2018Q1

REPORT INFORMATION
  Report Type: Report from Study
  Country: CA (occurrence: CA)
  Receive Date: 20180117
  Receipt Date: 20180131
  Transmission Date: 20180509
  Serious: Yes (Other)
  Sender: FDA-Public Use
  Company Number: CA-JNJFOC-20171034679

PATIENT
  Age: 64 Year
  Sex: Female
  Weight: 58.06 kg

DRUGS (4)
  1. REMICADE [Suspect]
     Active Substance: INFLIXIMAB
     Indication: COLITIS ULCERATIVE
     Dosage: STRENGTH = 100 MG
     Route: 042
  2. REMICADE [Suspect]
     Active Substance: INFLIXIMAB
     Indication: COLITIS ULCERATIVE
     Route: 042
     Dates: start: 20161017
  3. REMICADE [Suspect]
     Active Substance: INFLIXIMAB
     Indication: COLITIS MICROSCOPIC
     Dosage: STRENGTH = 100 MG
     Route: 042
  4. REMICADE [Suspect]
     Active Substance: INFLIXIMAB
     Indication: COLITIS MICROSCOPIC
     Route: 042
     Dates: start: 20161017

REACTIONS (3)
  - Anal cancer [Unknown]
  - Lip squamous cell carcinoma [Recovered/Resolved]
  - Skin disorder [Unknown]

NARRATIVE: CASE EVENT DATE: 2016
